FAERS Safety Report 8222335-7 (Version None)
Quarter: 2012Q1

REPORT INFORMATION
  Report Type: 
  Country: None (occurrence: None)
  Receive Date: 20120320
  Receipt Date: 20120312
  Transmission Date: 20120608
  Serious: Yes (Hospitalization)
  Sender: FDA-Public Use
  Company Number: US-BAYER-2011-104584

PATIENT
  Age: 37 Year
  Sex: Female
  Weight: 64.762 kg

DRUGS (18)
  1. DICYCLOMINE [Concomitant]
     Dosage: 20 MG
     Dates: start: 20080701
  2. METRONIDAZOLE [Concomitant]
     Dosage: 500 MG, UNK
     Dates: start: 20091201
  3. NABUMETONE [Concomitant]
     Dosage: UNK
     Dates: start: 20090701
  4. NEXIUM [Concomitant]
     Dosage: 40 MG QD
  5. METRONIDAZOLE [Concomitant]
     Dosage: 500 MG, UNK
     Dates: start: 20090901
  6. FAMOTIDINE [Concomitant]
     Indication: GASTROOESOPHAGEAL REFLUX DISEASE
     Dosage: 40 MG
     Dates: start: 20090901
  7. GREEN LIZARD [Concomitant]
     Indication: GASTROOESOPHAGEAL REFLUX DISEASE
     Dosage: UNK
     Dates: start: 20090901
  8. CIPROFLOXACIN [Concomitant]
     Dosage: 500 MG
     Dates: start: 20090901
  9. OMEPRAZOLE [Concomitant]
     Indication: GASTROOESOPHAGEAL REFLUX DISEASE
     Dosage: 40 MG, UNK
     Dates: start: 20090901
  10. YAZ [Suspect]
     Indication: PREMENSTRUAL SYNDROME
  11. DICYCLOMINE [Concomitant]
     Dosage: UNK
     Dates: start: 20081001
  12. DICYCLOMINE [Concomitant]
     Dosage: UNK
     Dates: start: 20090901
  13. SUMATRIPTAN [Concomitant]
     Indication: MIGRAINE
     Dosage: 50 MG, UNK
     Dates: start: 20091001
  14. PROGESTERONE [Concomitant]
     Dosage: 40 MG, UNK
  15. PHENERGAN [Concomitant]
     Dosage: 25 MG THREE TIMES DAILY AS NEEDED
  16. YAZ [Suspect]
     Indication: ORAL CONTRACEPTION
     Dosage: UNK
     Route: 048
     Dates: start: 20080401, end: 20090801
  17. DICYCLOMINE [Concomitant]
     Dosage: UNK
     Dates: start: 20090701
  18. PROMETRIUM [Concomitant]
     Indication: HORMONE REPLACEMENT THERAPY
     Dosage: 100 MG AT BEDTIME
     Dates: start: 20090701, end: 20100101

REACTIONS (2)
  - GALLBLADDER DISORDER [None]
  - CHOLECYSTITIS CHRONIC [None]
